FAERS Safety Report 24334436 (Version 1)
Quarter: 2024Q3

REPORT INFORMATION
  Report Type: Report from Study
  Country: CO (occurrence: CO)
  Receive Date: 20240918
  Receipt Date: 20240918
  Transmission Date: 20241016
  Serious: Yes (Other)
  Sender: JOHNSON AND JOHNSON
  Company Number: CO-JNJFOC-20240916345

PATIENT
  Age: 35 Year
  Sex: Female
  Weight: 52 kg

DRUGS (4)
  1. SIMPONI [Suspect]
     Active Substance: GOLIMUMAB
     Indication: Rheumatoid arthritis
     Dosage: V0: LAST ADMINISTRATION DATE WAS ON 09-AUG-2024?V1: LAST ADMINISTRATION WAS ON 09-SEP-2024
     Route: 058
     Dates: start: 20220902
  2. PREDNISOLONE [Concomitant]
     Active Substance: PREDNISOLONE
  3. VITAMIN E [Concomitant]
     Active Substance: .ALPHA.-TOCOPHEROL
  4. SULFASALAZINE [Concomitant]
     Active Substance: SULFASALAZINE
     Dosage: 1 TABLET
     Route: 065

REACTIONS (3)
  - Rheumatoid arthritis [Not Recovered/Not Resolved]
  - Influenza [Not Recovered/Not Resolved]
  - Therapeutic response decreased [Unknown]

NARRATIVE: CASE EVENT DATE: 20240601
